FAERS Safety Report 8846491 (Version 1)
Quarter: 2012Q4

REPORT INFORMATION
  Report Type: 
  Country: US (occurrence: US)
  Receive Date: 20121017
  Receipt Date: 20121017
  Transmission Date: 20130627
  Serious: No
  Sender: FDA-Public Use
  Company Number: US-GLAXOSMITHKLINE-A0952351A

PATIENT
  Age: 18 Month
  Sex: Female

DRUGS (2)
  1. CEFTIN [Suspect]
     Indication: PRODUCT USED FOR UNKNOWN INDICATION
     Dosage: 3.5CC Twice per day
     Route: 048
     Dates: start: 20111024
  2. NO CONCURRENT MEDICATION [Concomitant]

REACTIONS (2)
  - Drug ineffective [Unknown]
  - Incorrect storage of drug [Unknown]
